FAERS Safety Report 18842944 (Version 1)
Quarter: 2021Q1

REPORT INFORMATION
  Report Type: Spontaneous
  Country: US (occurrence: US)
  Receive Date: 20210203
  Receipt Date: 20210203
  Transmission Date: 20210419
  Serious: Yes (Other)
  Sender: FDA-Public Use
  Company Number: None

PATIENT
  Age: 80 Year
  Sex: Male

DRUGS (3)
  1. FUROSEMIDE 20MG [Concomitant]
     Active Substance: FUROSEMIDE
     Dates: start: 20190517
  2. JAKAFI [Suspect]
     Active Substance: RUXOLITINIB
     Indication: POLYCYTHAEMIA VERA
     Route: 048
     Dates: start: 20190509
  3. ALLOPURINOL 100MG [Concomitant]
     Active Substance: ALLOPURINOL
     Dates: start: 20190517

REACTIONS (2)
  - Inflammation [None]
  - Limb injury [None]

NARRATIVE: CASE EVENT DATE: 20210203
